FAERS Safety Report 16880936 (Version 5)
Quarter: 2019Q4

REPORT INFORMATION
  Report Type: Spontaneous
  Country: US (occurrence: US)
  Receive Date: 20191003
  Receipt Date: 20191025
  Transmission Date: 20200122
  Serious: Yes (Hospitalization, Other)
  Sender: FDA-Public Use
  Company Number: US-PFIZER INC-2019426277

PATIENT
  Age: 80 Year
  Sex: Female
  Weight: 63 kg

DRUGS (2)
  1. PREMARIN [Suspect]
     Active Substance: ESTROGENS, CONJUGATED
     Indication: HORMONE REPLACEMENT THERAPY
     Dosage: UNK
     Dates: start: 1980
  2. PREMARIN [Suspect]
     Active Substance: ESTROGENS, CONJUGATED
     Indication: HYSTERECTOMY

REACTIONS (11)
  - Insomnia [Recovered/Resolved]
  - Joint injury [Unknown]
  - Discomfort [Unknown]
  - Nervousness [Unknown]
  - Paranoia [Unknown]
  - Hyperhidrosis [Recovered/Resolved]
  - Hot flush [Unknown]
  - Condition aggravated [Unknown]
  - Intentional product misuse [Unknown]
  - Product dose omission [Unknown]
  - Feeling abnormal [Unknown]
